FAERS Safety Report 6983560-6 (Version None)
Quarter: 2010Q3

REPORT INFORMATION
  Report Type: 
  Country: None (occurrence: None)
  Receive Date: 20100914
  Receipt Date: 20080818
  Transmission Date: 20110219
  Serious: No
  Sender: FDA-Public Use
  Company Number: US-WYE-H05651808

PATIENT
  Sex: Female

DRUGS (1)
  1. ADVIL LIQUI-GELS [Suspect]
     Indication: ARTHRITIS
     Dosage: 2 LIQUI-GELS THREE TIMES DAILY
     Route: 048
     Dates: start: 20080815

REACTIONS (1)
  - FAECES DISCOLOURED [None]
